FAERS Safety Report 11857619 (Version 1)
Quarter: 2015Q4

REPORT INFORMATION
  Report Type: Spontaneous
  Country: US (occurrence: None)
  Receive Date: 20151221
  Receipt Date: 20151221
  Transmission Date: 20160305
  Serious: Yes (Other)
  Sender: FDA-Public Use
  Company Number: None

PATIENT
  Age: 62 Year
  Sex: Female

DRUGS (1)
  1. GLEEVEC [Suspect]
     Active Substance: IMATINIB MESYLATE
     Indication: LEUKAEMIA
     Dosage: 3 TABS ONCE DAILY
     Route: 048
     Dates: start: 20151020

REACTIONS (2)
  - Fatigue [None]
  - Swelling [None]

NARRATIVE: CASE EVENT DATE: 20151029
